FAERS Safety Report 4635147-8 (Version None)
Quarter: 2005Q2

REPORT INFORMATION
  Report Type: 
  Country: None (occurrence: None)
  Receive Date: 20050414
  Receipt Date: 20050210
  Transmission Date: 20051028
  Serious: Yes (Hospitalization)
  Sender: FDA-Public Use
  Company Number: US-GLAXOSMITHKLINE-A0544947A

PATIENT
  Age: 56 Year
  Sex: Female

DRUGS (5)
  1. LAMICTAL [Suspect]
     Indication: BIPOLAR DISORDER
     Route: 048
     Dates: start: 20040901, end: 20050403
  2. KLONOPIN [Concomitant]
  3. COZAAR [Concomitant]
  4. NORVASC [Concomitant]
  5. PROTONIX [Concomitant]

REACTIONS (10)
  - DRUG INEFFECTIVE [None]
  - EMOTIONAL DISORDER [None]
  - ERYTHEMA OF EYELID [None]
  - EYE IRRITATION [None]
  - EYELID OEDEMA [None]
  - EYELIDS PRURITUS [None]
  - RASH GENERALISED [None]
  - SKIN DISCOMFORT [None]
  - SKIN LESION [None]
  - VISION BLURRED [None]
